FAERS Safety Report 9393704 (Version 1)
Quarter: 2013Q3

REPORT INFORMATION
  Report Type: Spontaneous
  Country: GB (occurrence: None)
  Receive Date: 20130705
  Receipt Date: 20130705
  Transmission Date: 20140515
  Serious: Yes (Other)
  Sender: FDA-Public Use
  Company Number: DSM-2013-00607

PATIENT
  Age: 79 Year
  Sex: Male

DRUGS (4)
  1. OLMESARTAN [Suspect]
     Indication: HYPERTENSION
     Route: 048
     Dates: start: 20130513, end: 20130607
  2. AMOXICILLIN [Concomitant]
  3. RAMIPRIL [Concomitant]
  4. TIMOPTOL-LA (TIMOLOL MALEATE) (TIMOLOL MALEATE) [Concomitant]

REACTIONS (1)
  - Sinus headache [None]
